FAERS Safety Report 6817365-3 (Version None)
Quarter: 2010Q2

REPORT INFORMATION
  Report Type: 
  Country: None (occurrence: None)
  Receive Date: 20100630
  Receipt Date: 20100615
  Transmission Date: 20101027
  Serious: Yes (Other)
  Sender: FDA-Public Use
  Company Number: 2010AL003597

PATIENT
  Sex: Female

DRUGS (4)
  1. CHLORPROMAZINE HCL [Suspect]
  2. TRIMIPRAMINE CAPSULES 50 MG (ATLLC) (TRIMIPRAMINE) [Suspect]
  3. DROPERIDOL [Concomitant]
  4. HALOPERIDOL [Concomitant]

REACTIONS (7)
  - DYSTONIA [None]
  - EYE MOVEMENT DISORDER [None]
  - GRIMACING [None]
  - JOINT HYPEREXTENSION [None]
  - MUSCULOSKELETAL STIFFNESS [None]
  - PROTRUSION TONGUE [None]
  - SALIVARY HYPERSECRETION [None]
